FAERS Safety Report 14369117 (Version 1)
Quarter: 2018Q1

REPORT INFORMATION
  Report Type: Spontaneous
  Country: US (occurrence: US)
  Receive Date: 20180109
  Receipt Date: 20180109
  Transmission Date: 20180509
  Serious: No
  Sender: FDA-Public Use
  Company Number: US-DRREDDYS-USA/USA/17/0091274

PATIENT
  Age: 33 Year
  Sex: Female
  Weight: 68.03 kg

DRUGS (3)
  1. HABITROL [Suspect]
     Active Substance: NICOTINE
     Route: 062
     Dates: end: 20170601
  2. ZOLOFT [Concomitant]
     Active Substance: SERTRALINE HYDROCHLORIDE
     Indication: PRODUCT USED FOR UNKNOWN INDICATION
     Route: 065
  3. HABITROL [Suspect]
     Active Substance: NICOTINE
     Indication: SMOKING CESSATION THERAPY
     Route: 062
     Dates: start: 201705

REACTIONS (4)
  - Application site pruritus [Recovered/Resolved]
  - Scab [Unknown]
  - Application site burn [Not Recovered/Not Resolved]
  - Application site vesicles [Not Recovered/Not Resolved]
